FAERS Safety Report 8314684-9 (Version None)
Quarter: 2012Q2

REPORT INFORMATION
  Report Type: 
  Country: None (occurrence: None)
  Receive Date: 20120426
  Receipt Date: 20120420
  Transmission Date: 20120825
  Serious: Yes (Death, Other)
  Sender: FDA-Public Use
  Company Number: JP-ELI_LILLY_AND_COMPANY-JP201204000520

PATIENT
  Sex: Male

DRUGS (1)
  1. ZYPREXA [Suspect]
     Indication: SCHIZOPHRENIA
     Dosage: 20 MG, QD
     Route: 048
     Dates: start: 20110123

REACTIONS (4)
  - CARDIAC FAILURE ACUTE [None]
  - BLOOD TRIGLYCERIDES INCREASED [None]
  - GENERALISED OEDEMA [None]
  - WEIGHT INCREASED [None]
